FAERS Safety Report 23667726 (Version 1)
Quarter: 2024Q1

REPORT INFORMATION
  Report Type: Spontaneous
  Country: JP (occurrence: JP)
  Receive Date: 20240325
  Receipt Date: 20240325
  Transmission Date: 20240409
  Serious: Yes (Other)
  Sender: FDA-Public Use
  Company Number: JP-CHUGAI-2024008755

PATIENT
  Sex: Female

DRUGS (2)
  1. HEMLIBRA [Suspect]
     Active Substance: EMICIZUMAB-KXWH
     Indication: Acquired haemophilia
     Dosage: 60 MILLIGRAM, ONCE/WEEK
     Route: 058
     Dates: start: 20240221
  2. NOVOSEVEN [Concomitant]
     Active Substance: COAGULATION FACTOR VIIA RECOMBINANT HUMAN

REACTIONS (1)
  - Haemorrhage [Not Recovered/Not Resolved]

NARRATIVE: CASE EVENT DATE: 20240313
